FAERS Safety Report 4360587-4 (Version None)
Quarter: 2004Q2

REPORT INFORMATION
  Report Type: 
  Country: None (occurrence: None)
  Receive Date: 20040519
  Receipt Date: 20040507
  Transmission Date: 20050107
  Serious: Yes (Hospitalization, Other)
  Sender: FDA-Public Use
  Company Number: JP-BRISTOL-MYERS SQUIBB COMPANY-12584561

PATIENT
  Age: 28 Year
  Sex: Female

DRUGS (4)
  1. ENDOXAN [Suspect]
     Indication: BREAST CANCER
     Route: 048
     Dates: start: 20040303, end: 20040502
  2. UFT [Suspect]
     Indication: BREAST CANCER
     Route: 048
     Dates: start: 20040303, end: 20040502
  3. EPIRUBICIN HCL [Concomitant]
     Indication: BREAST CANCER
  4. FLUOROURACIL [Concomitant]
     Indication: BREAST CANCER

REACTIONS (3)
  - HEPATIC FUNCTION ABNORMAL [None]
  - PLATELET COUNT DECREASED [None]
  - WHITE BLOOD CELL COUNT DECREASED [None]
